FAERS Safety Report 9749447 (Version 1)
Quarter: 2013Q4

REPORT INFORMATION
  Report Type: Spontaneous
  Country: US (occurrence: US)
  Receive Date: 20131212
  Receipt Date: 20131212
  Transmission Date: 20140711
  Serious: Yes (Other)
  Sender: FDA-Public Use
  Company Number: ALCN2013US006109

PATIENT
  Age: 62 Year
  Sex: Female

DRUGS (15)
  1. PREDNISOLONE ACETATE [Suspect]
     Indication: SCLERITIS
     Route: 047
  2. PREDNISONE TABLETS USP 5 MG [Suspect]
     Indication: SCLERITIS
     Dosage: 60 MG, QD
     Route: 048
  3. PREDNISONE TABLETS USP 5 MG [Suspect]
     Dosage: 80 MG, QD
     Route: 048
  4. METHOTREXATE SODIUM [Suspect]
     Dosage: 15 MG, WEEKLY
  5. METHOTREXATE SODIUM [Suspect]
     Dosage: 20-25 MG QD
     Route: 048
  6. TUMOR NECROSIS FACTOR ALPHA (TNF-) INHIBITORS [Suspect]
     Indication: IMMUNOSUPPRESSION
  7. CYCLOPHOSPHAMIDE [Suspect]
     Indication: IMMUNOSUPPRESSION
     Dosage: 50 MG, QD
     Route: 042
  8. ADALIMUMAB [Suspect]
     Route: 030
  9. METHYLPREDNISOLONE ACETATE [Suspect]
     Indication: IMMUNOSUPPRESSION
     Route: 042
  10. VIGAMOX [Concomitant]
     Indication: SCLERITIS
     Dosage: UNK
     Route: 047
  11. ATROPINE [Concomitant]
     Indication: SCLERITIS
     Route: 047
  12. IBUPROFEN [Concomitant]
     Indication: SCLERITIS
     Dosage: 400 MG, QD
     Route: 048
  13. LEVOFLOXACIN [Concomitant]
     Indication: SCLERITIS
     Dosage: 500 MG, QD
     Route: 048
  14. VANCOMYCIN [Concomitant]
  15. CEFTAZIDIME [Concomitant]

REACTIONS (1)
  - Panophthalmitis [Recovered/Resolved with Sequelae]
